FAERS Safety Report 5568161-9 (Version None)
Quarter: 2007Q4

REPORT INFORMATION
  Report Type: 
  Country: None (occurrence: None)
  Receive Date: 20071220
  Receipt Date: 20071214
  Transmission Date: 20080405
  Serious: Yes (Other)
  Sender: FDA-Public Use
  Company Number: CA-NOVOPROD-270289

PATIENT
  Age: 60 Year
  Sex: Female

DRUGS (4)
  1. NOVORAPID PENFILL [Suspect]
     Indication: INSULIN-REQUIRING TYPE II DIABETES MELLITUS
     Dosage: 18 IU, QD
     Dates: start: 20070726
  2. LANTUS [Concomitant]
     Dosage: 12 IU, QD
     Dates: start: 20030620
  3. PREDNISONE [Concomitant]
  4. AMLODIPINE [Concomitant]
     Dosage: 5 MG, QD

REACTIONS (2)
  - CHEST PAIN [None]
  - DYSPNOEA [None]
